FAERS Safety Report 11537390 (Version 2)
Quarter: 2015Q4

REPORT INFORMATION
  Report Type: Spontaneous
  Country: US (occurrence: US)
  Receive Date: 20150922
  Receipt Date: 20151106
  Transmission Date: 20160304
  Serious: No
  Sender: FDA-Public Use
  Company Number: US-PFIZER INC-2015302673

PATIENT
  Age: 65 Year
  Sex: Female
  Weight: 99 kg

DRUGS (7)
  1. LETROZOLE. [Suspect]
     Active Substance: LETROZOLE
     Indication: BREAST CANCER
     Dosage: 2.5 MG, 1X/DAY
     Route: 048
     Dates: start: 20150611
  2. ZOLEDRONIC ACID. [Concomitant]
     Active Substance: ZOLEDRONIC ACID
     Dosage: MONTHLY
  3. ZORVOLEX [Concomitant]
     Active Substance: DICLOFENAC
     Dosage: 35 MG, 1X/DAY
     Route: 048
     Dates: start: 20150611
  4. HYDROCODONE/ACETAMINOPHEN [Concomitant]
     Active Substance: ACETAMINOPHEN\HYDROCODONE
     Dosage: (HYDROCODONE: 5 MG-ACETAMINOPHEN: 325 MG)
     Route: 048
     Dates: start: 20150521
  5. PROMETHAZINE [Concomitant]
     Active Substance: PROMETHAZINE\PROMETHAZINE HYDROCHLORIDE
     Dosage: 25 MG, UNK (1 Q 6H)
     Dates: start: 20150720
  6. IBRANCE [Suspect]
     Active Substance: PALBOCICLIB
     Indication: BREAST CANCER
     Dosage: 125 MG, 1X/DAY
     Route: 048
     Dates: start: 20150611
  7. PAROXETINE [Concomitant]
     Active Substance: PAROXETINE\PAROXETINE HYDROCHLORIDE
     Dosage: 20 MG, UNK
     Route: 048
     Dates: start: 20150611

REACTIONS (12)
  - Myalgia [Unknown]
  - Hypoaesthesia oral [Unknown]
  - Fatigue [Unknown]
  - Nausea [Recovering/Resolving]
  - Hypoaesthesia [Unknown]
  - Mucosal inflammation [Unknown]
  - Epigastric discomfort [Unknown]
  - Tooth injury [Unknown]
  - Dyspepsia [Unknown]
  - Asthenia [Unknown]
  - Hypersomnia [Unknown]
  - Gingival ulceration [Unknown]

NARRATIVE: CASE EVENT DATE: 20150902
